FAERS Safety Report 9915174 (Version 3)
Quarter: 2014Q3

REPORT INFORMATION
  Report Type: Spontaneous
  Country: AT (occurrence: AT)
  Receive Date: 20140220
  Receipt Date: 20140811
  Transmission Date: 20150326
  Serious: Yes (Life-Threatening, Hospitalization)
  Sender: FDA-Public Use
  Company Number: AT-ASTRAZENECA-2014SE11877

PATIENT
  Age: 46 Year
  Sex: Male

DRUGS (7)
  1. SEROQUEL XR [Suspect]
     Active Substance: QUETIAPINE FUMARATE
     Route: 048
     Dates: start: 20131004, end: 20131009
  2. TEMESTA [Suspect]
     Active Substance: LORAZEPAM
     Dosage: 5 MG - 7.5 MG, DAILY
     Route: 048
     Dates: start: 20131002, end: 20131021
  3. TEMESTA [Suspect]
     Active Substance: LORAZEPAM
     Route: 048
     Dates: start: 20131022, end: 20131105
  4. DEPAKINE CR [Suspect]
     Active Substance: VALPROATE SODIUM
     Dosage: 2000 MG-3000 MG, DAILY
     Route: 048
     Dates: start: 20131002, end: 20131016
  5. RISPERDAL [Concomitant]
     Active Substance: RISPERIDONE
     Dates: start: 20131012, end: 20131121
  6. SEROQUEL XR [Suspect]
     Active Substance: QUETIAPINE FUMARATE
     Route: 048
     Dates: start: 20131009, end: 20131013
  7. ABILIFY [Concomitant]
     Active Substance: ARIPIPRAZOLE
     Route: 048
     Dates: start: 20131003, end: 20131010

REACTIONS (4)
  - Mania [Unknown]
  - Agitation [Unknown]
  - Impaired self-care [Unknown]
  - Delirium [Recovered/Resolved]

NARRATIVE: CASE EVENT DATE: 20131009
